FAERS Safety Report 19928840 (Version 1)
Quarter: 2021Q4

REPORT INFORMATION
  Report Type: Spontaneous
  Country: US (occurrence: US)
  Receive Date: 20211007
  Receipt Date: 20211007
  Transmission Date: 20220303
  Serious: No
  Sender: FDA-Public Use
  Company Number: US-BAUSCH-BL-2021-033157

PATIENT
  Age: 80 Year
  Sex: Male

DRUGS (1)
  1. PROLENSA [Suspect]
     Active Substance: BROMFENAC SODIUM
     Indication: Postoperative care
     Route: 047
     Dates: start: 20210914

REACTIONS (2)
  - Instillation site pain [Recovered/Resolved]
  - Product colour issue [Unknown]

NARRATIVE: CASE EVENT DATE: 20210901
